FAERS Safety Report 5937708-2 (Version None)
Quarter: 2008Q4

REPORT INFORMATION
  Report Type: 
  Country: None (occurrence: None)
  Receive Date: 20081031
  Receipt Date: 20081022
  Transmission Date: 20090506
  Serious: Yes (Death, Other)
  Sender: FDA-Public Use
  Company Number: AR-MERCK-0810USA04263

PATIENT
  Age: 29 Year
  Sex: Male

DRUGS (4)
  1. DECADRON [Suspect]
     Indication: PROPHYLAXIS
     Route: 065
  2. CYCLOPHOSPHAMIDE AND DEXAMETHASONE AND DOXORUBICIN AND VINCRISTINE SUL [Concomitant]
     Indication: CHEMOTHERAPY
     Route: 065
  3. METHOTREXATE [Concomitant]
     Indication: PROPHYLAXIS
     Route: 065
  4. CYTARABINE [Concomitant]
     Indication: PROPHYLAXIS
     Route: 065

REACTIONS (5)
  - CEREBRAL HAEMORRHAGE [None]
  - DEATH [None]
  - FEBRILE NEUTROPENIA [None]
  - SEPTIC SHOCK [None]
  - THROMBOCYTOPENIA [None]
